FAERS Safety Report 11198694 (Version 1)
Quarter: 2015Q2

REPORT INFORMATION
  Report Type: Spontaneous
  Country: US (occurrence: None)
  Receive Date: 20150608
  Receipt Date: 20150608
  Transmission Date: 20150821
  Serious: No
  Sender: FDA-Public Use
  Company Number: 2015TUS003870

PATIENT
  Age: 50 Year
  Sex: Male

DRUGS (3)
  1. METFORMIN [Concomitant]
     Active Substance: METFORMIN HYDROCHLORIDE
  2. BRINTELLIX [Suspect]
     Active Substance: VORTIOXETINE HYDROBROMIDE
     Indication: DEPRESSION
     Route: 048
     Dates: start: 201403
  3. EXENATIDE [Concomitant]
     Active Substance: EXENATIDE

REACTIONS (4)
  - Muscular weakness [None]
  - Musculoskeletal pain [None]
  - Pain in extremity [None]
  - Peripheral swelling [None]
